FAERS Safety Report 11100149 (Version 3)
Quarter: 2015Q2

REPORT INFORMATION
  Report Type: Report from Study
  Country: IL (occurrence: IL)
  Receive Date: 20150508
  Receipt Date: 20150601
  Transmission Date: 20150821
  Serious: Yes (Hospitalization)
  Sender: FDA-Public Use
  Company Number: IL-SA-2015SA057936

PATIENT
  Age: 45 Year
  Sex: Female

DRUGS (1)
  1. LEMTRADA [Suspect]
     Active Substance: ALEMTUZUMAB
     Indication: MULTIPLE SCLEROSIS
     Dosage: 5 X 12 MG
     Route: 041
     Dates: end: 20150419

REACTIONS (2)
  - Pyrexia [Recovering/Resolving]
  - Meningitis listeria [Recovering/Resolving]

NARRATIVE: CASE EVENT DATE: 20150428
